FAERS Safety Report 18857484 (Version 2)
Quarter: 2021Q1

REPORT INFORMATION
  Report Type: Spontaneous
  Country: JP (occurrence: JP)
  Receive Date: 20210208
  Receipt Date: 20210222
  Transmission Date: 20210420
  Serious: Yes (Death, Hospitalization, Other)
  Sender: FDA-Public Use
  Company Number: JP-ALXN-A202015140AA

PATIENT
  Age: 83 Year
  Sex: Male

DRUGS (2)
  1. ULTOMIRIS [Suspect]
     Active Substance: RAVULIZUMAB-CWVZ
     Indication: PAROXYSMAL NOCTURNAL HAEMOGLOBINURIA
     Dosage: 3300 MG, Q8W
     Route: 042
     Dates: start: 20200206, end: 20200804
  2. ULTOMIRIS [Suspect]
     Active Substance: RAVULIZUMAB-CWVZ
     Dosage: 3000 MG, Q8W
     Route: 042
     Dates: start: 20201014, end: 20201014

REACTIONS (5)
  - Pneumonia aspiration [Fatal]
  - Condition aggravated [Unknown]
  - Weight decreased [Recovered/Resolved]
  - Wound infection [Unknown]
  - Injury [Unknown]
